FAERS Safety Report 7304566-3 (Version None)
Quarter: 2011Q1

REPORT INFORMATION
  Report Type: 
  Country: None (occurrence: None)
  Receive Date: 20110222
  Receipt Date: 20100416
  Transmission Date: 20110831
  Serious: Yes (Hospitalization, Other)
  Sender: FDA-Public Use
  Company Number: US-RANBAXY-2010US-33605

PATIENT

DRUGS (10)
  1. MARIBAVIR (PLACEBO) [Suspect]
     Indication: ANTIVIRAL PROPHYLAXIS
     Dosage: 100 MG, BID
     Route: 048
     Dates: start: 20080716, end: 20081020
  2. INSULIN [Concomitant]
     Indication: DIABETES MELLITUS
     Dosage: UNK,UNK
     Route: 065
  3. GANCICLOVIR [Suspect]
     Indication: ANTIVIRAL PROPHYLAXIS
     Dosage: 1000 MG, TID
     Route: 048
     Dates: start: 20080716, end: 20081020
  4. AMLODIPINE [Concomitant]
     Indication: HYPERTENSION
     Dosage: UNK,UNK
     Route: 065
  5. OMEPRAZOLE [Concomitant]
     Indication: GASTROOESOPHAGEAL REFLUX PROPHYLAXIS
     Dosage: UNK,UNK
     Route: 065
  6. ACYCLOVIR [Suspect]
     Indication: ANTIVIRAL PROPHYLAXIS
     Dosage: 400 MG, BID
     Route: 048
     Dates: start: 20080716, end: 20081020
  7. MICOPHENOLATO [Concomitant]
     Indication: PROPHYLAXIS AGAINST TRANSPLANT REJECTION
     Dosage: UNK,UNK
     Route: 065
  8. BACTRIM [Concomitant]
     Indication: INFECTION PROPHYLAXIS
     Route: 065
  9. TACROLIMUS [Concomitant]
     Indication: PROPHYLAXIS AGAINST TRANSPLANT REJECTION
     Dosage: UNK,UNK
     Route: 065
  10. ENALAPRILO/ HYDROTIAZIDA [Concomitant]
     Indication: HYPERTENSION
     Dosage: UNK,UNK
     Route: 065

REACTIONS (2)
  - DRUG INEFFECTIVE [None]
  - CYTOMEGALOVIRUS GASTROENTERITIS [None]
